FAERS Safety Report 18437448 (Version 9)
Quarter: 2021Q1

REPORT INFORMATION
  Report Type: Report from Study
  Country: CA (occurrence: CA)
  Receive Date: 20201028
  Receipt Date: 20210315
  Transmission Date: 20210419
  Serious: Yes (Hospitalization, Other)
  Sender: FDA-Public Use
  Company Number: CA-SHIRE-CA201943660

PATIENT
  Age: 66 Year
  Sex: Female
  Weight: 42 kg

DRUGS (22)
  1. AMLODIPINE [Concomitant]
     Active Substance: AMLODIPINE BESYLATE
     Dosage: 10 MILLIGRAM, QD
     Route: 048
  2. TEDUGLUTIDE [Suspect]
     Active Substance: TEDUGLUTIDE
     Indication: SHORT-BOWEL SYNDROME
     Dosage: 2.25 MILLIGRAM, 1X/DAY:QD
     Route: 065
     Dates: start: 20160815
  3. TEDUGLUTIDE [Suspect]
     Active Substance: TEDUGLUTIDE
     Indication: SHORT-BOWEL SYNDROME
     Dosage: 2.25 MILLIGRAM, 1X/DAY:QD
     Route: 065
     Dates: start: 20160815
  4. MAGNESIUM [Concomitant]
     Active Substance: MAGNESIUM
     Dosage: 7 GRAM, 1/WEEK
     Route: 065
  5. TYLENOL [Concomitant]
     Active Substance: ACETAMINOPHEN
     Dosage: UNK, PRN
     Route: 065
  6. CIPRO [Concomitant]
     Active Substance: CIPROFLOXACIN HYDROCHLORIDE
     Indication: GASTROINTESTINAL BACTERIAL OVERGROWTH
     Dosage: 250 MILLIGRAM, 4 TIMES A DAY
     Route: 048
  7. VITAMIN D 2000 [Concomitant]
     Active Substance: VITAMIN D NOS
     Indication: OSTEOPOROSIS
     Route: 065
  8. TEDUGLUTIDE [Suspect]
     Active Substance: TEDUGLUTIDE
     Indication: SHORT-BOWEL SYNDROME
     Dosage: 2.25 MILLIGRAM, 1X/DAY:QD
     Route: 065
     Dates: start: 20160815
  9. METRONIDAZOLE. [Concomitant]
     Active Substance: METRONIDAZOLE
     Indication: GASTROINTESTINAL BACTERIAL OVERGROWTH
     Route: 065
  10. AMILORIDE [Concomitant]
     Active Substance: AMILORIDE
     Dosage: 10 MILLIGRAM, QD
     Route: 048
  11. PROLIA [Concomitant]
     Active Substance: DENOSUMAB
     Dosage: UNK, INTRAMUSCULAR
     Route: 030
  12. RL [Concomitant]
     Dosage: UNK
     Route: 042
  13. NORVASC [Concomitant]
     Active Substance: AMLODIPINE BESYLATE
     Dosage: 10 MILLIGRAM, QD
     Route: 048
  14. SANDOSTATIN [Concomitant]
     Active Substance: OCTREOTIDE ACETATE
     Dosage: 40 MILLIGRAM, INTRAMUSCULAR
     Route: 065
  15. TEDUGLUTIDE [Suspect]
     Active Substance: TEDUGLUTIDE
     Indication: SHORT-BOWEL SYNDROME
     Dosage: 2.25 MILLIGRAM, 1X/DAY:QD
     Route: 065
     Dates: start: 20160815
  16. VITAMIN B12 [VITAMIN B12 NOS] [Concomitant]
     Active Substance: CYANOCOBALAMIN
     Dosage: 1200 MILLIGRAM, QD
     Route: 048
  17. OLESTYR [Concomitant]
     Active Substance: CHOLESTYRAMINE
     Dosage: 1/4 PACKET
     Route: 065
  18. REFLEXAN [Concomitant]
     Active Substance: CYCLOBENZAPRINE
     Indication: OVERGROWTH BACTERIAL
     Dosage: UNK
     Route: 065
  19. NEXIUM I.V. [Concomitant]
     Active Substance: ESOMEPRAZOLE SODIUM
     Dosage: 40 MILLIGRAM, QD
     Route: 048
  20. LOMOTIL [LOPERAMIDE HYDROCHLORIDE] [Concomitant]
     Active Substance: LOPERAMIDE HYDROCHLORIDE
     Dosage: TWICE A DAY
     Route: 065
  21. NORMAL SALINE [Concomitant]
     Active Substance: SODIUM CHLORIDE
     Dosage: UNK, Q2WEEKS
     Route: 042
  22. DOXYCYCLINE. [Concomitant]
     Active Substance: DOXYCYCLINE
     Indication: GASTROINTESTINAL BACTERIAL OVERGROWTH
     Dosage: 100 MILLIGRAM, TWICE A DAY
     Route: 065
     Dates: start: 20200922

REACTIONS (33)
  - Gastrointestinal pain [Unknown]
  - Blood magnesium decreased [Unknown]
  - Injection site mass [Recovered/Resolved]
  - Injection site pain [Recovered/Resolved]
  - Dyspnoea [Unknown]
  - Hospitalisation [Unknown]
  - Injection site pruritus [Not Recovered/Not Resolved]
  - Rash [Unknown]
  - Muscle spasms [Unknown]
  - Hunger [Unknown]
  - Polyp [Unknown]
  - Blood zinc decreased [Unknown]
  - Abdominal pain [Unknown]
  - Lung neoplasm malignant [Unknown]
  - Small intestinal obstruction [Unknown]
  - Peripheral swelling [Not Recovered/Not Resolved]
  - Abdominal discomfort [Unknown]
  - Fatigue [Unknown]
  - Abdominal distension [Not Recovered/Not Resolved]
  - Urticaria [Recovering/Resolving]
  - Diarrhoea [Not Recovered/Not Resolved]
  - Injection site erythema [Recovered/Resolved]
  - Pneumonia [Unknown]
  - Gastrointestinal infection [Recovered/Resolved]
  - Injection site swelling [Unknown]
  - Condition aggravated [Unknown]
  - Hypersensitivity [Recovered/Resolved]
  - Infusion site erythema [Recovering/Resolving]
  - Product dose omission issue [Unknown]
  - Inflammatory bowel disease [Unknown]
  - Pruritus [Recovered/Resolved]
  - Abdominal pain upper [Not Recovered/Not Resolved]
  - Joint swelling [Not Recovered/Not Resolved]

NARRATIVE: CASE EVENT DATE: 201912
